FAERS Safety Report 4662722-7 (Version None)
Quarter: 2005Q2

REPORT INFORMATION
  Report Type: 
  Country: None (occurrence: None)
  Receive Date: 20050516
  Receipt Date: 20050422
  Transmission Date: 20051028
  Serious: Yes (Hospitalization)
  Sender: FDA-Public Use
  Company Number: FR-GLAXOSMITHKLINE-B0379341A

PATIENT
  Age: 73 Year
  Sex: Female

DRUGS (13)
  1. AUGMENTIN '125' [Suspect]
     Dosage: 3G PER DAY
     Route: 042
     Dates: start: 20050212, end: 20050220
  2. OFLOCET [Suspect]
     Dosage: 2UNIT PER DAY
     Route: 042
     Dates: start: 20050212, end: 20050220
  3. PRAVASTATIN [Suspect]
     Dosage: 40MG PER DAY
     Route: 048
     Dates: start: 20050113, end: 20050216
  4. ZYPREXA [Concomitant]
     Dosage: 20MG PER DAY
     Route: 048
     Dates: end: 20050211
  5. TRANXENE [Concomitant]
     Dosage: 25MG TWICE PER DAY
     Route: 048
     Dates: end: 20050211
  6. ANAFRANIL CAP [Concomitant]
     Dosage: 75MG PER DAY
     Route: 048
     Dates: end: 20050211
  7. VASTAREL [Concomitant]
     Dosage: 35MG TWICE PER DAY
     Route: 065
  8. NITRODERM [Concomitant]
     Dosage: 10MG PER DAY
     Route: 065
  9. SERESTA [Concomitant]
     Dosage: 50MG PER DAY
     Route: 065
  10. TERCIAN [Concomitant]
     Dosage: 25MG TWICE PER DAY
     Route: 065
  11. KARDEGIC [Concomitant]
     Dosage: 75MG PER DAY
     Route: 065
  12. LOVENOX [Concomitant]
     Dosage: 1UNIT PER DAY
     Route: 058
     Dates: start: 20050212
  13. XANAX [Concomitant]
     Dosage: 1G PER DAY
     Route: 048
     Dates: start: 20050213

REACTIONS (7)
  - ABDOMINAL PAIN UPPER [None]
  - ALANINE AMINOTRANSFERASE INCREASED [None]
  - ASPARTATE AMINOTRANSFERASE INCREASED [None]
  - BLOOD ALKALINE PHOSPHATASE INCREASED [None]
  - GAMMA-GLUTAMYLTRANSFERASE INCREASED [None]
  - MICROLITHIASIS [None]
  - THROMBOCYTHAEMIA [None]
